FAERS Safety Report 22189402 (Version 3)
Quarter: 2023Q2

REPORT INFORMATION
  Report Type: Spontaneous
  Country: US (occurrence: US)
  Receive Date: 20230410
  Receipt Date: 20230522
  Transmission Date: 20230722
  Serious: No
  Sender: FDA-Public Use
  Company Number: US-SANOFI-01563485

PATIENT
  Sex: Female

DRUGS (1)
  1. ALLEGRA [Suspect]
     Active Substance: FEXOFENADINE HYDROCHLORIDE
     Indication: Rash
     Dosage: UNK (1 OR 2 TABLETS)
     Route: 065

REACTIONS (3)
  - Peripheral swelling [Unknown]
  - Eczema [Unknown]
  - Rash [Unknown]
